FAERS Safety Report 4800121-5 (Version None)
Quarter: 2005Q4

REPORT INFORMATION
  Report Type: 
  Country: None (occurrence: None)
  Receive Date: 20051017
  Receipt Date: 20041214
  Transmission Date: 20060501
  Serious: Yes (Other)
  Sender: FDA-Public Use
  Company Number: FR-GLAXOSMITHKLINE-B0362352A

PATIENT
  Age: 53 Year
  Sex: Female
  Weight: 77 kg

DRUGS (7)
  1. AVANDIA [Suspect]
     Dosage: 4MG PER DAY
     Route: 048
     Dates: start: 20041001
  2. NOVONORM [Suspect]
     Dosage: 1MG PER DAY
     Route: 048
     Dates: start: 20041101, end: 20041101
  3. OESTRODOSE [Concomitant]
     Indication: MENOPAUSE
     Route: 065
     Dates: start: 20000101
  4. NISIS [Concomitant]
     Indication: HYPERTENSION
     Dosage: 80MG PER DAY
     Route: 048
     Dates: start: 20040401
  5. OGAST [Concomitant]
     Dosage: 15MG PER DAY
     Route: 048
     Dates: start: 20010101
  6. VASTEN [Concomitant]
     Dosage: 20MG PER DAY
     Route: 048
     Dates: start: 20010101
  7. EUPRESSYL [Concomitant]
     Indication: HYPERTENSION
     Dosage: 30MG PER DAY
     Route: 048
     Dates: start: 20040801

REACTIONS (3)
  - HYPERHIDROSIS [None]
  - HYPOGLYCAEMIA [None]
  - SYNCOPE [None]
